FAERS Safety Report 8762571 (Version 1)
Quarter: 2012Q4

REPORT INFORMATION
  Report Type: 
  Country: CN (occurrence: CN)
  Receive Date: 20120830
  Receipt Date: 20120830
  Transmission Date: 20130627
  Serious: Yes (Death, Other)
  Sender: FDA-Public Use
  Company Number: CN-ROCHE-1104616

PATIENT
  Age: 63 Year
  Sex: Male
  Weight: 60 kg

DRUGS (1)
  1. ROCEPHIN [Suspect]
     Indication: LUNG INFECTION
     Route: 041
     Dates: start: 20100124, end: 20100127

REACTIONS (4)
  - Dermatitis exfoliative [Recovering/Resolving]
  - Mental status changes [Unknown]
  - Cardiac failure [Fatal]
  - Respiratory failure [Fatal]
